FAERS Safety Report 7689593-9 (Version None)
Quarter: 2011Q3

REPORT INFORMATION
  Report Type: 
  Country: None (occurrence: None)
  Receive Date: 20110817
  Receipt Date: 20110803
  Transmission Date: 20111222
  Serious: Yes (Life-Threatening, Hospitalization)
  Sender: FDA-Public Use
  Company Number: GB-PFIZER INC-2011178222

PATIENT
  Age: 23 Year
  Sex: Female

DRUGS (3)
  1. PARACETAMOL [Concomitant]
     Dosage: 500 MG, AS NEEDED
  2. NITROFURANTOIN [Concomitant]
     Dosage: 50 MG, 4X/DAY
  3. IBUPROFEN [Suspect]
     Dosage: 1 DF, 3X/DAY
     Route: 061
     Dates: start: 20110712, end: 20110719

REACTIONS (4)
  - LIP SWELLING [None]
  - DYSPNOEA [None]
  - WHEEZING [None]
  - SWELLING FACE [None]
